FAERS Safety Report 23281065 (Version 3)
Quarter: 2023Q4

REPORT INFORMATION
  Report Type: Spontaneous
  Country: US (occurrence: US)
  Receive Date: 20231211
  Receipt Date: 20231211
  Transmission Date: 20240110
  Serious: No
  Sender: FDA-Public Use
  Company Number: US-OPELLA-2023OHG015461

PATIENT
  Sex: Male

DRUGS (1)
  1. CAPSAICIN [Suspect]
     Active Substance: CAPSAICIN
     Indication: Product used for unknown indication
     Dosage: STRENGTH-10,62 MG; 4,25 G/42,5 G
     Route: 065

REACTIONS (2)
  - Application site pain [Unknown]
  - Product delivery mechanism issue [Unknown]
